FAERS Safety Report 6409376-7 (Version None)
Quarter: 2009Q4

REPORT INFORMATION
  Report Type: 
  Country: None (occurrence: None)
  Receive Date: 20091021
  Receipt Date: 20091009
  Transmission Date: 20100525
  Serious: Yes (Death)
  Sender: FDA-Public Use
  Company Number: US-GENENTECH-291848

PATIENT
  Sex: Female

DRUGS (12)
  1. OMALIZUMAB [Suspect]
     Indication: ASTHMA
     Dosage: UNK
     Dates: start: 20050324
  2. OMALIZUMAB [Suspect]
     Dosage: 150 MG, Q4W
  3. XOPENEX [Concomitant]
     Indication: ASTHMA
  4. XOPENEX [Concomitant]
     Indication: HYPERSENSITIVITY
  5. ADVAIR DISKUS 100/50 [Concomitant]
     Indication: ASTHMA
  6. ADVAIR DISKUS 100/50 [Concomitant]
     Indication: HYPERSENSITIVITY
  7. SPIRIVA [Concomitant]
     Indication: ASTHMA
  8. SPIRIVA [Concomitant]
     Indication: HYPERSENSITIVITY
  9. THEO-DUR [Concomitant]
     Indication: ASTHMA
  10. THEO-DUR [Concomitant]
     Indication: HYPERSENSITIVITY
  11. SINGULAIR [Concomitant]
     Indication: ASTHMA
  12. SINGULAIR [Concomitant]
     Indication: HYPERSENSITIVITY

REACTIONS (1)
  - CARDIAC ARREST [None]
